FAERS Safety Report 15889310 (Version 1)
Quarter: 2019Q1

REPORT INFORMATION
  Report Type: Spontaneous
  Country: US (occurrence: US)
  Receive Date: 20190130
  Receipt Date: 20190130
  Transmission Date: 20190417
  Serious: Yes (Hospitalization)
  Sender: FDA-Public Use
  Company Number: None

PATIENT
  Age: 10 Year
  Sex: Female

DRUGS (5)
  1. TRIMETHOPRIM TAB 100 MG [Concomitant]
     Dates: start: 20190107
  2. MULTIVITAMIN [Concomitant]
     Active Substance: VITAMINS
     Dates: start: 20190107
  3. NEUPOGEN [Suspect]
     Active Substance: FILGRASTIM
     Indication: BONE CANCER
     Route: 058
     Dates: start: 20190109
  4. ZOFRAN [Concomitant]
     Active Substance: ONDANSETRON HYDROCHLORIDE
     Dates: start: 20190107
  5. MIRALAX [Concomitant]
     Active Substance: POLYETHYLENE GLYCOL 3350
     Dates: start: 20190107

REACTIONS (2)
  - Hospitalisation [None]
  - Therapy cessation [None]

NARRATIVE: CASE EVENT DATE: 20190124
